FAERS Safety Report 11369977 (Version 1)
Quarter: 2015Q3

REPORT INFORMATION
  Report Type: Spontaneous
  Country: US (occurrence: US)
  Receive Date: 20150812
  Receipt Date: 20150812
  Transmission Date: 20151125
  Serious: Yes (Hospitalization)
  Sender: FDA-Public Use
  Company Number: US-JNJFOC-20150709592

PATIENT
  Age: 35 Year
  Sex: Female
  Weight: 185 kg

DRUGS (6)
  1. GLYBURIDE. [Concomitant]
     Active Substance: GLYBURIDE
     Dosage: BEFORE MEALS
     Route: 048
  2. LANTUS [Concomitant]
     Active Substance: INSULIN GLARGINE
     Route: 058
  3. GABAPENTIN. [Concomitant]
     Active Substance: GABAPENTIN
     Route: 048
  4. HUMALOG [Concomitant]
     Active Substance: INSULIN LISPRO
     Dosage: HUMALOG KWIPEN 100 UNITS/ ML SLIDING SCALE
     Route: 065
  5. INVOKANA [Suspect]
     Active Substance: CANAGLIFLOZIN
     Indication: TYPE 2 DIABETES MELLITUS
     Route: 048
     Dates: end: 20150516
  6. JANUMET [Concomitant]
     Active Substance: METFORMIN HYDROCHLORIDE\SITAGLIPTIN PHOSPHATE
     Dosage: 50-1000MG (2 TABLETS WITH EVENING MEAL)
     Route: 048

REACTIONS (3)
  - Diabetic ketoacidosis [Recovered/Resolved]
  - White blood cell count increased [Recovered/Resolved]
  - Hypotension [Recovered/Resolved]

NARRATIVE: CASE EVENT DATE: 20150516
